FAERS Safety Report 24222566 (Version 1)
Quarter: 2024Q3

REPORT INFORMATION
  Report Type: Report from Study
  Country: GB (occurrence: GB)
  Receive Date: 20240819
  Receipt Date: 20240819
  Transmission Date: 20241017
  Serious: Yes (Other)
  Sender: TEVA
  Company Number: GB-TEVA-VS-3219656

PATIENT
  Age: 63 Year
  Sex: Male

DRUGS (1)
  1. AJOVY [Suspect]
     Active Substance: FREMANEZUMAB-VFRM
     Indication: Migraine
     Dosage: FORM STRENGTH: 225MG/1.5ML
     Route: 058

REACTIONS (6)
  - Cerebrovascular accident [Unknown]
  - Cerebral palsy [Recovering/Resolving]
  - Epilepsy [Unknown]
  - Vertigo [Unknown]
  - Migraine [Unknown]
  - Gait disturbance [Unknown]
